FAERS Safety Report 21095992 (Version 2)
Quarter: 2022Q3

REPORT INFORMATION
  Report Type: Report from Study
  Country: US (occurrence: US)
  Receive Date: 20220718
  Receipt Date: 20220812
  Transmission Date: 20221027
  Serious: Yes (Other)
  Sender: FDA-Public Use
  Company Number: US-GILEAD-2022-0588259

PATIENT
  Age: 37 Year
  Sex: Male

DRUGS (5)
  1. BICTEGRAVIR\EMTRICITABINE\TENOFOVIR ALAFENAMIDE [Suspect]
     Active Substance: BICTEGRAVIR\EMTRICITABINE\TENOFOVIR ALAFENAMIDE
     Indication: HIV infection
     Dosage: 1 DOSAGE FORM, QD
     Route: 065
     Dates: start: 20220628, end: 20220705
  2. VALCYTE [Concomitant]
     Active Substance: VALGANCICLOVIR HYDROCHLORIDE
  3. PREDNISONE [Concomitant]
     Active Substance: PREDNISONE
  4. MEPRON [Concomitant]
     Active Substance: ATOVAQUONE
  5. MYCELEX [Concomitant]
     Active Substance: CLOTRIMAZOLE

REACTIONS (7)
  - Anaphylactic reaction [Recovered/Resolved]
  - Blood HIV RNA increased [Unknown]
  - Tongue paralysis [Recovered/Resolved]
  - Tongue discolouration [Recovered/Resolved]
  - Tongue haematoma [Recovered/Resolved]
  - Pruritus [Recovered/Resolved]
  - Rash papular [Recovered/Resolved]

NARRATIVE: CASE EVENT DATE: 20220629
